FAERS Safety Report 15290144 (Version 1)
Quarter: 2018Q3

REPORT INFORMATION
  Report Type: Report from Study
  Country: US (occurrence: US)
  Receive Date: 20180817
  Receipt Date: 20180817
  Transmission Date: 20181010
  Serious: Yes (Hospitalization, Other)
  Sender: FDA-Public Use
  Company Number: US-JNJFOC-20180701500

PATIENT
  Age: 78 Year
  Sex: Female

DRUGS (1)
  1. IMBRUVICA [Suspect]
     Active Substance: IBRUTINIB
     Indication: ACUTE LYMPHOCYTIC LEUKAEMIA
     Dosage: 420 MG, QD
     Route: 048
     Dates: start: 20180515, end: 201806

REACTIONS (11)
  - Pleural effusion [Unknown]
  - Peripheral arterial occlusive disease [Unknown]
  - Peripheral coldness [Unknown]
  - Breast cancer stage II [Unknown]
  - Cardiac failure congestive [Recovered/Resolved with Sequelae]
  - Atrial fibrillation [Unknown]
  - Off label use [Unknown]
  - Pneumonia [Unknown]
  - Coronary artery disease [Unknown]
  - Cardiomyopathy [Unknown]
  - Product use in unapproved indication [Unknown]

NARRATIVE: CASE EVENT DATE: 2018
